FAERS Safety Report 11779424 (Version 1)
Quarter: 2015Q4

REPORT INFORMATION
  Report Type: Spontaneous
  Country: FR (occurrence: SE)
  Receive Date: 20151125
  Receipt Date: 20151125
  Transmission Date: 20160304
  Serious: Yes (Other)
  Sender: FDA-Public Use
  Company Number: SE-FRI-1000081130

PATIENT
  Age: 72 Year
  Sex: Male

DRUGS (1)
  1. MILNACIPRAN [Suspect]
     Active Substance: MILNACIPRAN
     Indication: PRODUCT USED FOR UNKNOWN INDICATION
     Route: 065
     Dates: start: 20150410, end: 20150415

REACTIONS (6)
  - Pain [Recovered/Resolved]
  - Dizziness [Recovered/Resolved]
  - Deafness transitory [Recovered/Resolved]
  - Visual acuity reduced transiently [Recovered/Resolved]
  - Nausea [Recovered/Resolved]
  - Vomiting [Recovered/Resolved]

NARRATIVE: CASE EVENT DATE: 20150413
